FAERS Safety Report 9200570 (Version 1)
Quarter: 2013Q1

REPORT INFORMATION
  Report Type: Spontaneous
  Country: PT (occurrence: PT)
  Receive Date: 20130329
  Receipt Date: 20130329
  Transmission Date: 20140127
  Serious: Yes (Other)
  Sender: FDA-Public Use
  Company Number: PT-PFIZER INC-2013101350

PATIENT
  Age: 63 Year
  Sex: Female

DRUGS (1)
  1. SOLEXA [Suspect]
     Indication: BONE DISORDER
     Dosage: 1 DF (CAPSULE) ONCE DAILY
     Route: 048

REACTIONS (3)
  - Wheezing [Recovered/Resolved]
  - Dyspnoea [Recovered/Resolved]
  - Dysphonia [Recovered/Resolved]
